FAERS Safety Report 20612863 (Version 1)
Quarter: 2022Q1

REPORT INFORMATION
  Report Type: Spontaneous
  Country: US (occurrence: None)
  Receive Date: 20220318
  Receipt Date: 20220318
  Transmission Date: 20220423
  Serious: Yes (Hospitalization)
  Sender: FDA-Public Use
  Company Number: None

PATIENT
  Age: 35 Year
  Sex: Female
  Weight: 61.7 kg

DRUGS (9)
  1. REMICADE [Suspect]
     Active Substance: INFLIXIMAB
  2. CULTURELLE [Concomitant]
     Active Substance: LACTOBACILLUS RHAMNOSUS
  3. FERROUS SULFATE [Concomitant]
  4. FLORASTOR [Concomitant]
  5. LEVBID [Concomitant]
  6. MEDROXYPROGESTERONE [Concomitant]
  7. OMEPRAZOLE [Concomitant]
  8. ONDANSETRON [Concomitant]
  9. PREDNISONE [Concomitant]

REACTIONS (4)
  - Colitis ulcerative [None]
  - Condition aggravated [None]
  - Clostridium difficile infection [None]
  - Malnutrition [None]

NARRATIVE: CASE EVENT DATE: 20190917
